FAERS Safety Report 9157991 (Version 1)
Quarter: 2013Q1

REPORT INFORMATION
  Report Type: Report from Study
  Country: FR (occurrence: FR)
  Receive Date: 20130312
  Receipt Date: 20130312
  Transmission Date: 20140127
  Serious: Yes (Hospitalization, Other)
  Sender: FDA-Public Use
  Company Number: FR-ROCHE-1198412

PATIENT
  Age: 81 Year
  Sex: Female
  Weight: 68 kg

DRUGS (5)
  1. TOCILIZUMAB [Suspect]
     Indication: RHEUMATOID ARTHRITIS
     Route: 041
     Dates: start: 20110113
  2. TOCILIZUMAB [Suspect]
     Route: 041
     Dates: start: 20110507
  3. TOCILIZUMAB [Suspect]
     Route: 041
     Dates: start: 20110404
  4. TOCILIZUMAB [Suspect]
     Route: 041
     Dates: start: 20110502
  5. TOCILIZUMAB [Suspect]
     Route: 041
     Dates: start: 20110530

REACTIONS (6)
  - Dermabrasion [Recovered/Resolved]
  - Cardiopulmonary failure [Recovered/Resolved]
  - Chondrocalcinosis [Recovered/Resolved]
  - Anaemia [Unknown]
  - Haematology test abnormal [Not Recovered/Not Resolved]
  - Drug ineffective [Unknown]
